FAERS Safety Report 6716539-X (Version None)
Quarter: 2010Q2

REPORT INFORMATION
  Report Type: 
  Country: None (occurrence: None)
  Receive Date: 20100507
  Receipt Date: 20100427
  Transmission Date: 20101027
  Serious: Yes (Other)
  Sender: FDA-Public Use
  Company Number: CH-ELI_LILLY_AND_COMPANY-CH201004007506

PATIENT
  Age: 65 Year
  Sex: Male

DRUGS (7)
  1. ZYPREXA [Suspect]
     Dosage: 20 MG, DAILY (1/D)
     Route: 048
     Dates: start: 20091201, end: 20091207
  2. ZYPREXA [Suspect]
     Dosage: 25 MG, DAILY (1/D)
     Route: 048
     Dates: start: 20091208, end: 20100104
  3. LORAZEPAM [Concomitant]
     Dosage: 4 MG, DAILY (1/D)
     Route: 048
     Dates: start: 20091125, end: 20091129
  4. LORAZEPAM [Concomitant]
     Dosage: 3.5 MG, DAILY (1/D)
     Route: 048
     Dates: start: 20091130, end: 20091130
  5. LORAZEPAM [Concomitant]
     Dosage: 1 MG, DAILY (1/D)
     Route: 048
     Dates: start: 20091231, end: 20100118
  6. QUILONORM RETARD [Concomitant]
     Dosage: 450 MG, DAILY (1/D)
     Route: 048
     Dates: start: 20091209, end: 20091217
  7. QUILONORM RETARD [Concomitant]
     Dosage: 900 MG, DAILY (1/D)
     Route: 048
     Dates: start: 20091218

REACTIONS (4)
  - ALANINE AMINOTRANSFERASE INCREASED [None]
  - BLOOD TRIGLYCERIDES INCREASED [None]
  - OVERDOSE [None]
  - THROMBOCYTOPENIA [None]
